FAERS Safety Report 8928779 (Version 1)
Quarter: 2012Q4

REPORT INFORMATION
  Report Type: 
  Country: DE (occurrence: DE)
  Receive Date: 20121127
  Receipt Date: 20121127
  Transmission Date: 20130627
  Serious: Yes (Hospitalization)
  Sender: FDA-Public Use
  Company Number: DE-PFIZER INC-2012292963

PATIENT
  Age: 55 Year
  Sex: Male
  Weight: 116 kg

DRUGS (17)
  1. GENOTROPIN [Suspect]
     Dosage: UNK
     Route: 058
     Dates: start: 20020307
  2. CORTISONE ACETATE [Concomitant]
     Indication: ACTH DECREASED
     Dosage: UNK
     Dates: start: 19800701
  3. LEVOTHYROXINE [Concomitant]
     Indication: TSH DECREASED
     Dosage: UNK
     Dates: start: 19800701
  4. LEVOTHYROXINE [Concomitant]
     Indication: PRIMARY HYPOTHYROIDISM
  5. PERGONAL [Concomitant]
     Indication: LUTEINISING HORMONE DEFICIENCY
     Dosage: UNK
     Dates: start: 19980301
  6. PERGONAL [Concomitant]
     Indication: FOLLICLE-STIMULATING HORMONE DEFICIENCY
  7. PERGONAL [Concomitant]
     Indication: TESTICULAR HYPOGONADISM
  8. PREGNESIN [Concomitant]
     Indication: LUTEINISING HORMONE DEFICIENCY
     Dosage: UNK
     Dates: start: 19980301
  9. PREGNESIN [Concomitant]
     Indication: FOLLICLE-STIMULATING HORMONE DEFICIENCY
  10. PREGNESIN [Concomitant]
     Indication: TESTICULAR HYPOGONADISM
  11. RANITIDINE [Concomitant]
     Indication: GASTRITIS
     Dosage: UNK
     Dates: start: 19981015
  12. RANITIDINE [Concomitant]
     Indication: DUODENITIS
  13. TESTOVIRON [Concomitant]
     Indication: FOLLICLE-STIMULATING HORMONE DEFICIENCY
     Dosage: UNK
     Dates: start: 20010215
  14. TESTOVIRON [Concomitant]
     Indication: LUTEINISING HORMONE DEFICIENCY
  15. TESTOVIRON [Concomitant]
     Indication: TESTICULAR HYPOGONADISM
  16. CELEBREX [Concomitant]
     Indication: NEURALGIA
     Dosage: UNK
     Dates: start: 20030701
  17. CELEBREX [Concomitant]
     Indication: NEURITIS

REACTIONS (1)
  - Intervertebral disc disorder [Unknown]
